FAERS Safety Report 12926500 (Version 4)
Quarter: 2016Q4

REPORT INFORMATION
  Report Type: Spontaneous
  Country: US (occurrence: US)
  Receive Date: 20161109
  Receipt Date: 20161202
  Transmission Date: 20170207
  Serious: No
  Sender: FDA-Public Use
  Company Number: US-TEVA-708874USA

PATIENT
  Age: 56 Year
  Sex: Female
  Weight: 66.28 kg

DRUGS (4)
  1. OPANA [Concomitant]
     Active Substance: OXYMORPHONE HYDROCHLORIDE
     Indication: PAIN
  2. FENTORA [Suspect]
     Active Substance: FENTANYL CITRATE
     Indication: PAIN
     Dosage: 2000 MICROGRAM DAILY;
     Route: 002
     Dates: start: 201610, end: 20161028
  3. NORCO [Concomitant]
     Active Substance: ACETAMINOPHEN\HYDROCODONE BITARTRATE
     Indication: PAIN
  4. XANAX [Concomitant]
     Active Substance: ALPRAZOLAM
     Indication: ANXIETY

REACTIONS (7)
  - Drug dose omission [Not Recovered/Not Resolved]
  - Tremor [Unknown]
  - Adverse event [Unknown]
  - Hyperhidrosis [Unknown]
  - Pain [Unknown]
  - Product use issue [Unknown]
  - Malaise [Not Recovered/Not Resolved]

NARRATIVE: CASE EVENT DATE: 201610
